FAERS Safety Report 7094093-3 (Version None)
Quarter: 2010Q4

REPORT INFORMATION
  Report Type: 
  Country: None (occurrence: None)
  Receive Date: 20101109
  Receipt Date: 20101109
  Transmission Date: 20110411
  Serious: Yes (Hospitalization, Other)
  Sender: FDA-Public Use
  Company Number: None

PATIENT
  Age: 24 Year
  Sex: Male
  Weight: 127.0072 kg

DRUGS (5)
  1. ROBITUSSIN COUGH AND COLD ROBITUSSIN [Suspect]
     Indication: NASOPHARYNGITIS
     Dates: start: 20100303, end: 20100611
  2. ER [Concomitant]
  3. CREAM [Concomitant]
  4. OINTMENT [Concomitant]
  5. PAIN MEDS [Concomitant]

REACTIONS (4)
  - BLISTER [None]
  - DRUG INEFFECTIVE [None]
  - PAIN [None]
  - SKIN EXFOLIATION [None]
